FAERS Safety Report 9795929 (Version 1)
Quarter: 2014Q1

REPORT INFORMATION
  Report Type: Spontaneous
  Country: FR (occurrence: FR)
  Receive Date: 20140103
  Receipt Date: 20140103
  Transmission Date: 20141002
  Serious: Yes (Hospitalization)
  Sender: FDA-Public Use
  Company Number: FR-BAYER-2013-157849

PATIENT
  Age: 36 Year
  Sex: Female

DRUGS (3)
  1. QLAIRA [Suspect]
     Indication: CONTRACEPTION
     Dosage: UNK
     Route: 048
  2. CURACNE [Suspect]
     Indication: ACNE
     Dosage: 35 MG, QD
     Route: 048
     Dates: start: 20130510
  3. CIPROFLOXACIN [Suspect]
     Indication: PYELONEPHRITIS
     Dosage: UNK
     Route: 048
     Dates: start: 20130928, end: 20131010

REACTIONS (1)
  - Hepatic steatosis [Not Recovered/Not Resolved]
